FAERS Safety Report 6605170-2 (Version None)
Quarter: 2010Q1

REPORT INFORMATION
  Report Type: 
  Country: None (occurrence: None)
  Receive Date: 20100226
  Receipt Date: 20100218
  Transmission Date: 20100710
  Serious: Yes (Hospitalization)
  Sender: FDA-Public Use
  Company Number: GB-GENZYME-FABR-1001233

PATIENT
  Sex: Female
  Weight: 73 kg

DRUGS (5)
  1. FABRAZYME [Suspect]
     Indication: FABRY'S DISEASE
     Dosage: 20 MG, Q2W
     Route: 042
  2. FABRAZYME [Suspect]
     Dosage: UNK MG, Q2W
     Route: 042
     Dates: start: 20030701
  3. SOTALOL [Concomitant]
     Indication: DRUG USE FOR UNKNOWN INDICATION
     Dosage: 320 MG, UNK
  4. ALLOPURINOL [Concomitant]
     Indication: DRUG USE FOR UNKNOWN INDICATION
     Dosage: 100 MG, UNK
  5. VALSARTAN [Concomitant]
     Indication: DRUG USE FOR UNKNOWN INDICATION
     Dosage: 40 MG, UNK

REACTIONS (3)
  - BLOOD PRESSURE ABNORMAL [None]
  - TACHYCARDIA [None]
  - URINARY TRACT INFECTION [None]
